FAERS Safety Report 24750481 (Version 1)
Quarter: 2024Q4

REPORT INFORMATION
  Report Type: Report from Study
  Country: CA (occurrence: CA)
  Receive Date: 20241218
  Receipt Date: 20241218
  Transmission Date: 20250115
  Serious: Yes (Life-Threatening, Hospitalization, Other)
  Sender: SANDOZ
  Company Number: CA-002147023-NVSC2022CA187205

PATIENT
  Age: 45 Year
  Sex: Female
  Weight: 59.596 kg

DRUGS (3)
  1. HYRIMOZ [Suspect]
     Active Substance: ADALIMUMAB-ADAZ
     Dosage: WEEK 160MG, WEEK 80MG THEN 40 EVERY OTHER WEEK, STARTING WEEK 4;EVERY TWO WEEKS
     Route: 058
  2. HYRIMOZ [Suspect]
     Active Substance: ADALIMUMAB-ADAZ
     Dosage: 40 MG
     Route: 058
     Dates: start: 202207
  3. HYRIMOZ [Suspect]
     Active Substance: ADALIMUMAB-ADAZ
     Indication: Crohn^s disease
     Dosage: 40 MG (PRE-FILLED PEN)
     Route: 058
     Dates: start: 20220727

REACTIONS (37)
  - Vision blurred [Unknown]
  - Rash [Unknown]
  - Psoriasis [Unknown]
  - Hypoaesthesia [Unknown]
  - Paraesthesia [Unknown]
  - Abdominal distension [Unknown]
  - Abdominal discomfort [Unknown]
  - Cold-stimulus headache [Unknown]
  - Neck pain [Unknown]
  - Hypertension [Unknown]
  - Cold burn [Unknown]
  - Periorbital swelling [Unknown]
  - Abdominal discomfort [Unknown]
  - Crohn^s disease [Unknown]
  - Abdominal pain [Unknown]
  - Diarrhoea [Unknown]
  - Bowel movement irregularity [Unknown]
  - Abdominal tenderness [Unknown]
  - Cerebrovascular accident [Unknown]
  - Haematochezia [Unknown]
  - Fatigue [Not Recovered/Not Resolved]
  - Insomnia [Not Recovered/Not Resolved]
  - Asthenia [Unknown]
  - Menstrual disorder [Unknown]
  - Heavy menstrual bleeding [Unknown]
  - Blepharospasm [Unknown]
  - Burning sensation [Unknown]
  - Abdominal distension [Unknown]
  - Abnormal sensation in eye [Unknown]
  - Feeling cold [Unknown]
  - Nausea [Unknown]
  - Blood pressure increased [Unknown]
  - Injection site pain [Not Recovered/Not Resolved]
  - Constipation [Unknown]
  - Therapy cessation [Unknown]
  - Intentional dose omission [Unknown]
  - General physical health deterioration [Unknown]

NARRATIVE: CASE EVENT DATE: 20240201
